FAERS Safety Report 7182932-7 (Version None)
Quarter: 2010Q4

REPORT INFORMATION
  Report Type: 
  Country: None (occurrence: None)
  Receive Date: 20101209
  Receipt Date: 20101126
  Transmission Date: 20110411
  Serious: Yes (Hospitalization, Other)
  Sender: FDA-Public Use
  Company Number: 009562

PATIENT
  Sex: Male

DRUGS (6)
  1. CDP870/PLACEBO (INVESTIGATIONAL DRUG) [Suspect]
     Indication: RHEUMATOID ARTHRITIS
     Dosage: 200 MG 1X/2 WEEKS SUBCUTANEOUS
     Route: 058
     Dates: start: 20091019, end: 20100308
  2. PREDNISOLONE [Suspect]
     Indication: RHEUMATOID ARTHRITIS
     Dosage: 7.5 MG QD ORAL
     Route: 048
     Dates: start: 20000515
  3. RIMATIL (NOT SPECIFIED) [Suspect]
     Indication: RHEUMATOID ARTHRITIS
     Dosage: 200 MG ORAL
     Route: 048
     Dates: start: 20071203
  4. AZULFIDINE [Suspect]
     Indication: RHEUMATOID ARTHRITIS
     Dosage: 1000 MG ORAL
     Route: 048
     Dates: start: 20020708
  5. VOLTAREN [Suspect]
     Indication: RHEUMATOID ARTHRITIS
     Dosage: 75 MG ORAL
     Route: 048
     Dates: start: 20000807
  6. GASTROM [Suspect]
     Indication: GASTRITIS PROPHYLAXIS
     Dosage: 3 G ORAL
     Route: 048
     Dates: start: 20000501

REACTIONS (1)
  - CALCULUS URINARY [None]
